FAERS Safety Report 10407604 (Version 1)
Quarter: 2014Q3

REPORT INFORMATION
  Report Type: Spontaneous
  Country: US (occurrence: US)
  Receive Date: 20140825
  Receipt Date: 20140825
  Transmission Date: 20150326
  Serious: No
  Sender: FDA-Public Use
  Company Number: US-GILEAD-2014-0112946

PATIENT
  Age: 63 Year
  Sex: Female

DRUGS (3)
  1. PEGASYS [Concomitant]
     Active Substance: PEGINTERFERON ALFA-2A
     Dosage: UNK
  2. RIBAVIRIN. [Concomitant]
     Active Substance: RIBAVIRIN
     Dosage: UNK
  3. SOVALDI [Suspect]
     Active Substance: SOFOSBUVIR
     Indication: HEPATITIS C
     Dosage: UNK
     Route: 065

REACTIONS (1)
  - Liver function test abnormal [Unknown]
